FAERS Safety Report 23592523 (Version 1)
Quarter: 2024Q1

REPORT INFORMATION
  Report Type: Spontaneous
  Country: US (occurrence: None)
  Receive Date: 20240303
  Receipt Date: 20240303
  Transmission Date: 20240410
  Serious: Yes (Hospitalization, Disabling)
  Sender: FDA-Public Use
  Company Number: None

PATIENT
  Age: 25 Year
  Sex: Male
  Weight: 63 kg

DRUGS (3)
  1. ALPRAZOLAM [Suspect]
     Active Substance: ALPRAZOLAM
     Indication: Anxiety disorder
     Dosage: OTHER QUANTITY : 120 TABLET(S);?FREQUENCY : 4 TIMES A DAY;?
     Route: 048
     Dates: start: 20210901, end: 20240219
  2. Generic Adderall 20mg [Concomitant]
  3. Multivitamin daily [Concomitant]

REACTIONS (1)
  - Facial paralysis [None]

NARRATIVE: CASE EVENT DATE: 20240227
